FAERS Safety Report 5724220-9 (Version None)
Quarter: 2008Q2

REPORT INFORMATION
  Report Type: 
  Country: None (occurrence: None)
  Receive Date: 20080430
  Receipt Date: 20080425
  Transmission Date: 20081010
  Serious: Yes (Life-Threatening, Hospitalization)
  Sender: FDA-Public Use
  Company Number: JP-MERCK-0804USA01198

PATIENT
  Age: 70 Year
  Sex: Female

DRUGS (3)
  1. COZAAR [Suspect]
     Indication: HYPERTENSION
     Route: 048
     Dates: start: 20080307, end: 20080324
  2. CALBLOCK [Concomitant]
     Indication: HYPERTENSION
     Route: 048
     Dates: start: 20080307, end: 20080324
  3. CALBLOCK [Concomitant]
     Route: 048
     Dates: start: 20080325, end: 20080329

REACTIONS (2)
  - CARDIAC ARREST [None]
  - HYPERKALAEMIA [None]
